FAERS Safety Report 8440075-6 (Version None)
Quarter: 2012Q2

REPORT INFORMATION
  Report Type: 
  Country: None (occurrence: None)
  Receive Date: 20120615
  Receipt Date: 20120614
  Transmission Date: 20120825
  Serious: Yes (Hospitalization)
  Sender: FDA-Public Use
  Company Number: GB-BAYER-2012-046209

PATIENT
  Age: 53 Year
  Sex: Male
  Weight: 122.5 kg

DRUGS (8)
  1. OMEPRAZOLE [Concomitant]
     Indication: DYSPEPSIA
     Dosage: 20MG
  2. TRANDOLAPRIL [Concomitant]
     Indication: HYPERTENSION
     Dosage: 4MG
  3. BENDROFLUMETHIAZIDE [Concomitant]
     Dosage: 2.5MG
  4. SORAFENIB (RAF KINASE INHIBITOR) [Suspect]
     Indication: HEPATIC NEOPLASM MALIGNANT
     Dosage: 400 MG, BID
     Route: 048
     Dates: start: 20120221
  5. DOXORUBICIN HCL [Suspect]
     Indication: HEPATIC NEOPLASM MALIGNANT
     Dosage: UNK
     Dates: start: 20120320, end: 20120320
  6. SIMVASTATIN [Concomitant]
     Indication: HYPERCHOLESTEROLAEMIA
     Dosage: 40MG
  7. CETIRIZINE HYDROCHLORIDE [Concomitant]
     Dosage: 10MG
  8. METFORMIN HCL [Concomitant]
     Indication: DIABETES MELLITUS
     Dosage: 500MG

REACTIONS (1)
  - SKIN INDURATION [None]
